FAERS Safety Report 13937871 (Version 1)
Quarter: 2017Q3

REPORT INFORMATION
  Report Type: Spontaneous
  Country: JP (occurrence: JP)
  Receive Date: 20170905
  Receipt Date: 20170905
  Transmission Date: 20171127
  Serious: Yes (Hospitalization, Other)
  Sender: FDA-Public Use
  Company Number: JP-MYLANLABS-2017M1054114

PATIENT
  Age: 44 Year
  Sex: Female

DRUGS (1)
  1. VERAPAMIL [Suspect]
     Active Substance: VERAPAMIL HYDROCHLORIDE
     Indication: PRODUCT USED FOR UNKNOWN INDICATION
     Dosage: 3440 MG, TOTAL
     Route: 048

REACTIONS (4)
  - Circulatory collapse [Recovering/Resolving]
  - Respiratory depression [Recovering/Resolving]
  - Overdose [Unknown]
  - Altered state of consciousness [Recovering/Resolving]
